FAERS Safety Report 8286736-3 (Version None)
Quarter: 2012Q2

REPORT INFORMATION
  Report Type: 
  Country: None (occurrence: None)
  Receive Date: 20120416
  Receipt Date: 20120412
  Transmission Date: 20120825
  Serious: No
  Sender: FDA-Public Use
  Company Number: US-BAYER-2012-036165

PATIENT
  Age: 73 Year
  Sex: Female
  Weight: 42 kg

DRUGS (7)
  1. VITAMIN B COMPLEX CAP [Concomitant]
  2. ALEVE (CAPLET) [Suspect]
     Indication: ANALGESIC THERAPY
     Dosage: 1 CAPLET AS NEEDED
     Route: 048
     Dates: start: 20100101, end: 20120412
  3. CALCIUM CARBONATE [Concomitant]
  4. INOSITOL [Concomitant]
  5. VITAMIN D [Concomitant]
  6. VICODIN [Concomitant]
  7. FISH OIL [Concomitant]

REACTIONS (1)
  - PAIN [None]
